FAERS Safety Report 11112166 (Version 1)
Quarter: 2015Q2

REPORT INFORMATION
  Report Type: Spontaneous
  Country: US (occurrence: None)
  Receive Date: 20150513
  Receipt Date: 20150513
  Transmission Date: 20150821
  Serious: Yes (Life-Threatening)
  Sender: FDA-Public Use
  Company Number: None

PATIENT
  Age: 65 Year
  Sex: Male
  Weight: 129.28 kg

DRUGS (10)
  1. ACTOS [Concomitant]
     Active Substance: PIOGLITAZONE HYDROCHLORIDE
  2. ASPRIN [Concomitant]
     Active Substance: ASPIRIN
  3. SIMVASTATIN. [Concomitant]
     Active Substance: SIMVASTATIN
  4. INVOKANA [Suspect]
     Active Substance: CANAGLIFLOZIN
     Indication: GLYCOSYLATED HAEMOGLOBIN INCREASED
     Route: 048
  5. ALLUPIRINAL [Concomitant]
  6. VALSTARTIN HCT [Concomitant]
  7. METFORMIN [Concomitant]
     Active Substance: METFORMIN HYDROCHLORIDE
  8. AMARYL [Concomitant]
     Active Substance: GLIMEPIRIDE
  9. FISH OIL [Concomitant]
     Active Substance: FISH OIL
  10. VITAMIN C [Concomitant]
     Active Substance: ASCORBIC ACID

REACTIONS (8)
  - Asthenia [None]
  - Pollakiuria [None]
  - Weight decreased [None]
  - Mental impairment [None]
  - Low density lipoprotein increased [None]
  - Blood glucose increased [None]
  - Thirst [None]
  - Skin atrophy [None]

NARRATIVE: CASE EVENT DATE: 20150316
